FAERS Safety Report 22812765 (Version 4)
Quarter: 2024Q1

REPORT INFORMATION
  Report Type: Other
  Country: US (occurrence: None)
  Receive Date: 20230811
  Receipt Date: 20240228
  Transmission Date: 20240409
  Serious: Yes (Death, Other)
  Sender: FDA-Public Use
  Company Number: US-ROCHE-3402705

PATIENT

DRUGS (3)
  1. RITUXIMAB [Suspect]
     Active Substance: RITUXIMAB
     Indication: Follicular lymphoma
     Dosage: RITUXIMAB 375 MG/M2 IV WEEKLY DURING CYCLE 2, AND ON DAY 1 OF SUBSEQUENT CYCLES
     Route: 042
  2. ACALABRUTINIB [Suspect]
     Active Substance: ACALABRUTINIB
     Indication: Follicular lymphoma
     Dosage: ACALABRUTINIB 100 MG ORALLY (PO) TWICE A DAY IN A 28-DAY CYCLE FOR 13 CYCLES
     Route: 048
  3. LENALIDOMIDE [Suspect]
     Active Substance: LENALIDOMIDE
     Indication: Follicular lymphoma
     Dosage: LENALIDOMIDE 20 MG PO DAILY ON DAYS 1-21, STARTING FROM CYCLE 2
     Route: 048

REACTIONS (6)
  - COVID-19 [Fatal]
  - Neutropenia [Unknown]
  - Liver function test increased [Unknown]
  - Infection [Unknown]
  - Anaemia [Unknown]
  - Rash [Unknown]
